FAERS Safety Report 18992995 (Version 2)
Quarter: 2021Q1

REPORT INFORMATION
  Report Type: Spontaneous
  Country: US (occurrence: US)
  Receive Date: 20210310
  Receipt Date: 20210316
  Transmission Date: 20210420
  Serious: No
  Sender: FDA-Public Use
  Company Number: NVSC2021US054051

PATIENT
  Sex: Female

DRUGS (2)
  1. CALCIPOTRIOL/BETAMETHASONE SANDOZ [Concomitant]
     Indication: PRODUCT USED FOR UNKNOWN INDICATION
     Dosage: UNK
     Route: 065
  2. COSENTYX [Suspect]
     Active Substance: SECUKINUMAB
     Indication: PRODUCT USED FOR UNKNOWN INDICATION
     Dosage: 300 MG, Q4W
     Route: 065
     Dates: start: 20200707, end: 20201220

REACTIONS (1)
  - Oropharyngeal candidiasis [Unknown]

NARRATIVE: CASE EVENT DATE: 202012
